FAERS Safety Report 16988607 (Version 1)
Quarter: 2019Q4

REPORT INFORMATION
  Report Type: Spontaneous
  Country: US (occurrence: US)
  Receive Date: 20191104
  Receipt Date: 20191104
  Transmission Date: 20200122
  Serious: No
  Sender: FDA-Public Use
  Company Number: US-MYLANLABS-2019M1099552

PATIENT
  Age: 37 Year
  Sex: Female
  Weight: 45 kg

DRUGS (5)
  1. CLONAZEPAM. [Concomitant]
     Active Substance: CLONAZEPAM
     Dosage: 1 MILLIGRAM, BID
  2. EMSAM [Suspect]
     Active Substance: SELEGILINE
     Indication: PANIC DISORDER
  3. EMSAM [Suspect]
     Active Substance: SELEGILINE
     Indication: ANXIETY
  4. CLONAZEPAM. [Concomitant]
     Active Substance: CLONAZEPAM
     Dosage: 0.5 MILLIGRAM, BID
  5. EMSAM [Suspect]
     Active Substance: SELEGILINE
     Indication: DEPRESSION
     Dosage: 1 DOSAGE FORM, QD
     Route: 062
     Dates: start: 201903

REACTIONS (1)
  - Application site swelling [Not Recovered/Not Resolved]

NARRATIVE: CASE EVENT DATE: 2019
